FAERS Safety Report 9205847 (Version 2)
Quarter: 2013Q2

REPORT INFORMATION
  Report Type: Spontaneous
  Country: US (occurrence: None)
  Receive Date: 20130401
  Receipt Date: 20130405
  Transmission Date: 20140414
  Serious: Yes (Other)
  Sender: FDA-Public Use
  Company Number: FK201301000

PATIENT
  Age: 61 Year
  Sex: Male

DRUGS (2)
  1. METHOTREXATE [Suspect]
     Indication: LYMPHOMA
     Dosage: 300 UG/0.05 ML BIWEEKLY FOR 1 MONTH 1 WEEKLY
  2. HYPROMELLOSE [Suspect]

REACTIONS (2)
  - Keratitis [None]
  - Toxicity to various agents [None]
